FAERS Safety Report 10261150 (Version 1)
Quarter: 2014Q2

REPORT INFORMATION
  Report Type: Spontaneous
  Country: US (occurrence: US)
  Receive Date: 20140626
  Receipt Date: 20140626
  Transmission Date: 20141212
  Serious: No
  Sender: FDA-Public Use
  Company Number: US-BAYER-2014-095613

PATIENT
  Age: 84 Year
  Sex: Male
  Weight: 68.03 kg

DRUGS (5)
  1. ALEVE CAPLET [Suspect]
     Indication: ARTHRITIS
     Dosage: 1 DF, QD
     Route: 048
  2. IRON [Concomitant]
  3. VITAMIN C [Concomitant]
  4. VITAMIN E [Concomitant]
  5. GLUCOSAMINE SULFATE [Concomitant]

REACTIONS (1)
  - Incorrect drug administration duration [None]
